FAERS Safety Report 8931241 (Version 1)
Quarter: 2012Q4

REPORT INFORMATION
  Report Type: 
  Country: US (occurrence: US)
  Receive Date: 20121128
  Receipt Date: 20121128
  Transmission Date: 20130627
  Serious: No
  Sender: FDA-Public Use
  Company Number: US-COVIDIEN/TYCO HEALTHCARE/MALLINCKRODT-T201203285

PATIENT
  Age: 75 Year
  Sex: Female

DRUGS (5)
  1. KIT FOR THE PREPARATION OF TECHNETIUM (TC-99M) SESTAMIBI INJECTION [Suspect]
     Indication: CARDIAC STRESS TEST
     Dosage: UNKNOWN
     Route: 042
     Dates: start: 20120815, end: 20120815
  2. ULTRA-TECHNEKOW DTE GENERATOR [Suspect]
     Indication: CARDIAC STRESS TEST
     Dosage: 34 mCi, single
     Route: 042
     Dates: start: 20120815, end: 20120815
  3. LISINOPRIL + HIDROCLOROTIAZIDA [Concomitant]
     Indication: PRODUCT USED FOR UNKNOWN INDICATION
     Dosage: UNKNOWN
  4. SYNTHROID [Concomitant]
     Indication: PRODUCT USED FOR UNKNOWN INDICATION
     Dosage: UNKNOWN
  5. VITAMINS                           /90003601/ [Concomitant]
     Indication: PRODUCT USED FOR UNKNOWN INDICATION
     Dosage: UNKNOWN

REACTIONS (2)
  - Rash [Recovered/Resolved]
  - Pruritus [Recovered/Resolved]
